FAERS Safety Report 23802530 (Version 2)
Quarter: 2024Q2

REPORT INFORMATION
  Report Type: Spontaneous
  Country: JP (occurrence: JP)
  Receive Date: 20240501
  Receipt Date: 20240521
  Transmission Date: 20240715
  Serious: Yes (Other)
  Sender: FDA-Public Use
  Company Number: JP-SUN PHARMACEUTICAL INDUSTRIES LTD-2024R1-443466

PATIENT
  Age: 5 Decade
  Sex: Female

DRUGS (2)
  1. TIZANIDINE [Suspect]
     Active Substance: TIZANIDINE
     Indication: Neck pain
     Dosage: 3 MILLIGRAM/DAY
     Route: 065
  2. TIZANIDINE [Suspect]
     Active Substance: TIZANIDINE
     Dosage: 8 MILLIGRAM/DAY
     Route: 065

REACTIONS (7)
  - Drug withdrawal syndrome [Unknown]
  - Hallucination [Unknown]
  - Decorticate posture [Unknown]
  - Tremor [Unknown]
  - Hypertension [Unknown]
  - Tachycardia [Unknown]
  - Tachypnoea [Unknown]
